FAERS Safety Report 5051814-9 (Version None)
Quarter: 2006Q3

REPORT INFORMATION
  Report Type: 
  Country: None (occurrence: None)
  Receive Date: 20060712
  Receipt Date: 20060712
  Transmission Date: 20061208
  Serious: Yes (Other)
  Sender: FDA-Public Use
  Company Number: None

PATIENT
  Age: 68 Year
  Sex: Male

DRUGS (9)
  1. BACLOFEN [Suspect]
     Dosage: 10 MG TID PO
     Route: 048
  2. PLAVIX [Concomitant]
  3. ASPIRIN [Concomitant]
  4. ATENOLOL [Concomitant]
  5. COZAAR [Concomitant]
  6. ZOLOFT [Concomitant]
  7. LASIX [Concomitant]
  8. NEXIUM [Concomitant]
  9. ZOCOR [Concomitant]

REACTIONS (1)
  - HALLUCINATIONS, MIXED [None]
